FAERS Safety Report 21365806 (Version 2)
Quarter: 2022Q4

REPORT INFORMATION
  Report Type: Spontaneous
  Country: US (occurrence: US)
  Receive Date: 20220922
  Receipt Date: 20221007
  Transmission Date: 20230113
  Serious: Yes (Other)
  Sender: FDA-Public Use
  Company Number: US-TEVA-2022-US-2075432

PATIENT
  Age: 21 Year
  Sex: Female

DRUGS (5)
  1. CLOBETASOL [Suspect]
     Active Substance: CLOBETASOL
     Indication: Alopecia areata
     Route: 061
  2. METHOTREXATE [Suspect]
     Active Substance: METHOTREXATE
     Indication: Chorioretinitis
     Route: 048
     Dates: start: 2019, end: 2019
  3. INFLIXIMAB [Suspect]
     Active Substance: INFLIXIMAB
     Indication: Chorioretinitis
     Dosage: .1786 MG/KG DAILY; EVERY 4 WEEKS
     Route: 042
     Dates: start: 2019, end: 2019
  4. INFLIXIMAB [Suspect]
     Active Substance: INFLIXIMAB
     Dosage: .3571 MG/KG DAILY; EVERY 4 WEEKS
     Route: 042
     Dates: start: 2019, end: 2019
  5. MINOXIDIL [Suspect]
     Active Substance: MINOXIDIL
     Indication: Alopecia areata
     Route: 061

REACTIONS (2)
  - Alopecia universalis [Recovered/Resolved]
  - Drug ineffective [Unknown]
